FAERS Safety Report 19905216 (Version 1)
Quarter: 2021Q3

REPORT INFORMATION
  Report Type: Spontaneous
  Country: US (occurrence: US)
  Receive Date: 20210930
  Receipt Date: 20210930
  Transmission Date: 20211014
  Serious: Yes (Other)
  Sender: FDA-Public Use
  Company Number: US-GILEAD-2021-0550251

PATIENT
  Age: 60 Year
  Sex: Female
  Weight: 67.6 kg

DRUGS (1)
  1. YESCARTA [Suspect]
     Active Substance: AXICABTAGENE CILOLEUCEL
     Indication: FOLLICULAR LYMPHOMA
     Dosage: 1 DOSAGE FORM, ONCE
     Route: 042
     Dates: start: 20210715, end: 20210715

REACTIONS (6)
  - Aspartate aminotransferase increased [Unknown]
  - Tremor [Unknown]
  - Cytokine release syndrome [Unknown]
  - Hypotension [Unknown]
  - Pyrexia [Unknown]
  - Headache [Unknown]

NARRATIVE: CASE EVENT DATE: 20210722
